FAERS Safety Report 16032807 (Version 1)
Quarter: 2019Q1

REPORT INFORMATION
  Report Type: Spontaneous
  Country: US (occurrence: US)
  Receive Date: 20190305
  Receipt Date: 20190305
  Transmission Date: 20190418
  Serious: No
  Sender: FDA-Public Use
  Company Number: US-IMPAX LABORATORIES, LLC-2018-IPXL-02103

PATIENT
  Age: 54 Year
  Sex: Male

DRUGS (5)
  1. RYTARY [Suspect]
     Active Substance: CARBIDOPA\LEVODOPA
     Indication: PARKINSON^S DISEASE
     Dosage: 61.25/245 MG, TWO CAPSULES, THREE TIMES A DAY
     Route: 048
     Dates: start: 201804, end: 2018
  2. PRAMIPEXOLE. [Concomitant]
     Active Substance: PRAMIPEXOLE
     Dosage: 1MG, DAILY (0.5MG IN MORNING, 0.25MG IN AFTERNOON AND 0.25MG IN EVENING; 2 PILLS A DAY)
     Route: 065
  3. RYTARY [Suspect]
     Active Substance: CARBIDOPA\LEVODOPA
     Dosage: 61.25/245 MG, SEVEN CAPSULES A DAY
     Route: 048
     Dates: start: 2018, end: 2018
  4. PRAMIPEXOLE. [Concomitant]
     Active Substance: PRAMIPEXOLE
     Indication: PARKINSON^S DISEASE
     Dosage: 0.5MG, THREE TIMES A DAY
     Route: 065
  5. RYTARY [Suspect]
     Active Substance: CARBIDOPA\LEVODOPA
     Dosage: 61.25/245 MG, EIGHT CAPSULES, DAILY (3 CAP IN MORNING, 2 IN AFTERNOON AND 3 IN EVENING)
     Route: 048
     Dates: start: 2018, end: 2018

REACTIONS (3)
  - Tremor [Recovering/Resolving]
  - Drug effect incomplete [Recovered/Resolved]
  - Dystonia [Recovering/Resolving]
